FAERS Safety Report 7609220-6 (Version None)
Quarter: 2011Q3

REPORT INFORMATION
  Report Type: 
  Country: None (occurrence: None)
  Receive Date: 20110706
  Receipt Date: 20110622
  Transmission Date: 20111222
  Serious: Yes (Hospitalization, Other)
  Sender: FDA-Public Use
  Company Number: 1000021905

PATIENT
  Age: 24 Year
  Sex: Female
  Weight: 58 kg

DRUGS (2)
  1. ESCITALOPRAM [Suspect]
     Indication: OBSESSIVE-COMPULSIVE DISORDER
     Dosage: 40 MG (40 MG, 1 IN 1 D), ORAL
     Route: 048
     Dates: start: 20090101, end: 20100131
  2. FOLIC ACID [Concomitant]

REACTIONS (11)
  - OVERDOSE [None]
  - CONGENITAL CHOROID PLEXUS CYST [None]
  - PREMATURE BABY [None]
  - NEURAL TUBE DEFECT [None]
  - BENIGN CONGENITAL HYPOTONIA [None]
  - BRADYCARDIA [None]
  - MATERNAL DRUGS AFFECTING FOETUS [None]
  - NEONATAL RESPIRATORY DEPRESSION [None]
  - CONGENITAL ANOMALY [None]
  - CARDIAC MURMUR [None]
  - FOETAL DISTRESS SYNDROME [None]
